FAERS Safety Report 26107954 (Version 1)
Quarter: 2025Q4

REPORT INFORMATION
  Report Type: Spontaneous
  Country: US (occurrence: None)
  Receive Date: 20251201
  Receipt Date: 20251201
  Transmission Date: 20260117
  Serious: No
  Sender: INFORLIFE
  Company Number: US-INFO-20250294

PATIENT
  Age: 36 Year
  Sex: Female

DRUGS (2)
  1. ZOLEDRONIC ACID [Suspect]
     Active Substance: ZOLEDRONIC ACID
  2. IBRANCE [Concomitant]
     Active Substance: PALBOCICLIB
     Indication: Breast cancer female
     Dosage: 125MG TAKE 1 TABLET DAILY FOR 21 DAYS FOLLOWED BY 7 DAYS OFF

REACTIONS (5)
  - Bone pain [Unknown]
  - Myalgia [Unknown]
  - Nausea [Recovering/Resolving]
  - Fatigue [Unknown]
  - Dyspnoea [Unknown]
